FAERS Safety Report 6808842-X (Version None)
Quarter: 2010Q2

REPORT INFORMATION
  Report Type: 
  Country: None (occurrence: None)
  Receive Date: 20100630
  Receipt Date: 20091001
  Transmission Date: 20101027
  Serious: No
  Sender: FDA-Public Use
  Company Number: US-PFIZER INC-2009252306

PATIENT
  Sex: Male
  Weight: 81.6 kg

DRUGS (4)
  1. VIAGRA [Suspect]
     Indication: ERECTILE DYSFUNCTION
     Dosage: 50 MG, AS NEEDED DAILY DOSE: 50 MG
     Dates: start: 20090805
  2. ARICEPT [Concomitant]
  3. IMIPRAMINE [Concomitant]
     Indication: NEUROPATHY PERIPHERAL
     Dosage: UNK
  4. NAMENDA [Concomitant]
     Indication: DEMENTIA ALZHEIMER'S TYPE
     Dosage: UNK

REACTIONS (2)
  - DRUG INEFFECTIVE [None]
  - HOT FLUSH [None]
